FAERS Safety Report 10024223 (Version 1)
Quarter: 2014Q1

REPORT INFORMATION
  Report Type: Spontaneous
  Country: US (occurrence: US)
  Receive Date: 20140320
  Receipt Date: 20140320
  Transmission Date: 20141002
  Serious: No
  Sender: FDA-Public Use
  Company Number: US-PFIZER INC-2014079590

PATIENT
  Sex: 0

DRUGS (1)
  1. EFFEXOR XR [Suspect]
     Indication: DEPRESSION
     Dosage: 150 MG, UNK

REACTIONS (4)
  - Sciatica [Unknown]
  - Prostatic disorder [Unknown]
  - Bladder dilatation [Unknown]
  - Psychomotor hyperactivity [Unknown]
